FAERS Safety Report 23103130 (Version 3)
Quarter: 2023Q4

REPORT INFORMATION
  Report Type: Spontaneous
  Country: US (occurrence: US)
  Receive Date: 20231025
  Receipt Date: 20231109
  Transmission Date: 20240110
  Serious: Yes (Hospitalization, Other)
  Sender: FDA-Public Use
  Company Number: US-GSK-US2023AMR142666

PATIENT
  Sex: Female

DRUGS (3)
  1. NUCALA [Suspect]
     Active Substance: MEPOLIZUMAB
     Indication: Product used for unknown indication
     Dosage: UNK
  2. OFATUMUMAB [Concomitant]
     Active Substance: OFATUMUMAB
     Indication: Product used for unknown indication
  3. ELASOMERAN [Concomitant]
     Active Substance: ELASOMERAN
     Indication: Product used for unknown indication

REACTIONS (9)
  - Band sensation [Not Recovered/Not Resolved]
  - Chest pain [Not Recovered/Not Resolved]
  - Rash [Unknown]
  - Headache [Unknown]
  - Dermatitis atopic [Unknown]
  - Hypersensitivity [Not Recovered/Not Resolved]
  - Swelling face [Not Recovered/Not Resolved]
  - Urticaria [Not Recovered/Not Resolved]
  - Herpes zoster [Not Recovered/Not Resolved]
